FAERS Safety Report 24813891 (Version 2)
Quarter: 2025Q1

REPORT INFORMATION
  Report Type: Spontaneous
  Country: BR (occurrence: BR)
  Receive Date: 20250107
  Receipt Date: 20250110
  Transmission Date: 20250409
  Serious: No
  Sender: AMGEN
  Company Number: BR-AMGEN-BRASP2024256967

PATIENT

DRUGS (2)
  1. FILGRASTIM [Suspect]
     Active Substance: FILGRASTIM
     Indication: Haematopoietic stem cell mobilisation
     Dosage: UNK UNK, QD (RECEIVED APPROXIMATELY 10 MCG/KG/DAY OF FILGRASTIM FROM  FIRST TO THE FOURTH DAY)
     Route: 065
  2. FILGRASTIM [Suspect]
     Active Substance: FILGRASTIM
     Dosage: 20 MICROGRAM/KILOGRAM, QD
     Route: 065

REACTIONS (2)
  - Blood stem cell harvest failure [Unknown]
  - Off label use [Unknown]
